FAERS Safety Report 10278670 (Version 1)
Quarter: 2014Q3

REPORT INFORMATION
  Report Type: Spontaneous
  Country: DK (occurrence: DK)
  Receive Date: 20140704
  Receipt Date: 20140704
  Transmission Date: 20150326
  Serious: Yes (Death, Other)
  Sender: FDA-Public Use
  Company Number: DK-ASTRAZENECA-2014SE48295

PATIENT
  Age: 25570 Day
  Sex: Male

DRUGS (2)
  1. BRILIQUE [Suspect]
     Active Substance: TICAGRELOR
     Indication: ACUTE MYOCARDIAL INFARCTION
     Route: 048
     Dates: start: 20131111, end: 20140510
  2. SIMVASTATIN ^ACTAVIS^ [Interacting]
     Active Substance: SIMVASTATIN
     Indication: MYOCARDIAL ISCHAEMIA
     Route: 048
     Dates: start: 20131112, end: 20140506

REACTIONS (6)
  - Hyperkalaemia [Fatal]
  - Rhabdomyolysis [Fatal]
  - Myalgia [Unknown]
  - Drug interaction [Fatal]
  - Renal failure [Fatal]
  - Myositis [Unknown]

NARRATIVE: CASE EVENT DATE: 20140506
